FAERS Safety Report 7974133-7 (Version None)
Quarter: 2011Q4

REPORT INFORMATION
  Report Type: 
  Country: None (occurrence: None)
  Receive Date: 20111213
  Receipt Date: 20110727
  Transmission Date: 20120403
  Serious: Yes (Other)
  Sender: FDA-Public Use
  Company Number: US-BAYER-201033317NA

PATIENT
  Age: 21 Year
  Sex: Female
  Weight: 53 kg

DRUGS (8)
  1. YASMIN [Suspect]
     Indication: CONTRACEPTION
     Dosage: UNK
     Route: 048
     Dates: start: 20030101, end: 20090827
  2. YAZ [Suspect]
     Indication: PREMENSTRUAL SYNDROME
  3. YAZ [Suspect]
     Indication: ACNE
  4. EFFEXOR XR [Concomitant]
     Indication: ANXIETY
     Dosage: 150 MG, QD
     Route: 048
     Dates: start: 20071128, end: 20080927
  5. YASMIN [Suspect]
     Indication: ACNE
  6. YASMIN [Suspect]
     Indication: PREMENSTRUAL SYNDROME
  7. YAZ [Suspect]
     Indication: CONTRACEPTION
     Dosage: UNK
     Dates: start: 20030101, end: 20090101
  8. CLONAZEPAM [Concomitant]
     Indication: ANXIETY
     Dosage: 0.5 MG, QD
     Route: 048
     Dates: start: 20081027, end: 20090513

REACTIONS (10)
  - WEIGHT DECREASED [None]
  - ENAMEL ANOMALY [None]
  - GALLBLADDER DISORDER [None]
  - ABDOMINAL PAIN [None]
  - NAUSEA [None]
  - MALNUTRITION [None]
  - DIARRHOEA [None]
  - ARTHRALGIA [None]
  - CHOLECYSTITIS [None]
  - BONE PAIN [None]
